FAERS Safety Report 10975863 (Version 1)
Quarter: 2015Q2

REPORT INFORMATION
  Report Type: Spontaneous
  Country: IT (occurrence: IT)
  Receive Date: 20150401
  Receipt Date: 20150401
  Transmission Date: 20150821
  Serious: Yes (Other)
  Sender: FDA-Public Use
  Company Number: IT-BAUSCH-BL-2015-010164

PATIENT
  Age: 66 Year
  Sex: Female

DRUGS (1)
  1. MACUGEN [Suspect]
     Active Substance: PEGAPTANIB SODIUM
     Indication: DIABETIC RETINAL OEDEMA
     Route: 031

REACTIONS (1)
  - Macular hole [Unknown]
